FAERS Safety Report 8848223 (Version 2)
Quarter: 2015Q3

REPORT INFORMATION
  Report Type: Report from Study
  Country: US (occurrence: US)
  Receive Date: 20121018
  Receipt Date: 20150812
  Transmission Date: 20151125
  Serious: Yes (Hospitalization)
  Sender: FDA-Public Use
  Company Number: US-ROCHE-1109712

PATIENT
  Sex: Male
  Weight: 34.9 kg

DRUGS (13)
  1. PROTROPIN [Suspect]
     Active Substance: SOMATREM
     Route: 065
  2. PROTROPIN [Suspect]
     Active Substance: SOMATREM
     Route: 065
  3. PROTROPIN [Suspect]
     Active Substance: SOMATREM
     Route: 065
  4. PROTROPIN [Suspect]
     Active Substance: SOMATREM
     Indication: BODY HEIGHT BELOW NORMAL
     Route: 058
  5. PROTROPIN [Suspect]
     Active Substance: SOMATREM
     Indication: CYSTIC FIBROSIS
     Route: 058
     Dates: start: 19911213
  6. PROTROPIN [Suspect]
     Active Substance: SOMATREM
     Route: 065
  7. TOBRAMYCIN INHALATION [Concomitant]
  8. ALBUTEROL. [Concomitant]
     Active Substance: ALBUTEROL
  9. PROTROPIN [Suspect]
     Active Substance: SOMATREM
     Indication: DWARFISM
     Route: 058
  10. PROTROPIN [Suspect]
     Active Substance: SOMATREM
     Indication: PANCREATIC INSUFFICIENCY
     Route: 065
  11. PROTROPIN [Suspect]
     Active Substance: SOMATREM
     Route: 065
  12. CREON [Concomitant]
     Active Substance: PANCRELIPASE AMYLASE\PANCRELIPASE LIPASE\PANCRELIPASE PROTEASE
  13. KEFLEX [Concomitant]
     Active Substance: CEPHALEXIN
     Route: 065

REACTIONS (7)
  - Crepitations [Unknown]
  - Arthropod bite [Unknown]
  - Viral infection [Unknown]
  - Weight decreased [Recovered/Resolved]
  - Musculoskeletal pain [Unknown]
  - Clubbing [Unknown]
  - Rhonchi [Unknown]
